FAERS Safety Report 5908138-4 (Version None)
Quarter: 2008Q4

REPORT INFORMATION
  Report Type: 
  Country: None (occurrence: None)
  Receive Date: 20081003
  Receipt Date: 20080923
  Transmission Date: 20090506
  Serious: Yes (Other)
  Sender: FDA-Public Use
  Company Number: AU-PFIZER INC-2008082479

PATIENT
  Sex: Female

DRUGS (1)
  1. CHANTIX [Suspect]
     Dates: end: 20080922

REACTIONS (5)
  - BLISTER [None]
  - PRURITUS [None]
  - RASH [None]
  - SKIN DISORDER [None]
  - WOUND SECRETION [None]
